FAERS Safety Report 13212290 (Version 2)
Quarter: 2017Q2

REPORT INFORMATION
  Report Type: Report from Study
  Country: US (occurrence: US)
  Receive Date: 20170210
  Receipt Date: 20170504
  Transmission Date: 20170830
  Serious: Yes (Other)
  Sender: FDA-Public Use
  Company Number: US-009507513-1701USA012923

PATIENT
  Age: 78 Year
  Sex: Male

DRUGS (2)
  1. PEMBROLIZUMAB. [Suspect]
     Active Substance: PEMBROLIZUMAB
     Indication: MALIGNANT MELANOMA
     Dosage: 162 MG, Q3W
     Route: 042
     Dates: start: 201601, end: 201701
  2. PEMBROLIZUMAB. [Suspect]
     Active Substance: PEMBROLIZUMAB
     Dosage: 162 MG, Q3W
     Route: 042
     Dates: start: 20170320

REACTIONS (9)
  - Irritability [Recovered/Resolved]
  - Erythema [Recovered/Resolved]
  - Nausea [Recovered/Resolved]
  - Mass [Unknown]
  - Skin haemorrhage [Recovered/Resolved]
  - Pyrexia [Recovered/Resolved]
  - Scratch [Recovered/Resolved]
  - Pruritus [Recovered/Resolved]
  - Drug dose omission [Unknown]

NARRATIVE: CASE EVENT DATE: 20160112
